FAERS Safety Report 17822360 (Version 3)
Quarter: 2020Q3

REPORT INFORMATION
  Report Type: Report from Study
  Country: US (occurrence: US)
  Receive Date: 20200526
  Receipt Date: 20200702
  Transmission Date: 20201102
  Serious: Yes (Other)
  Sender: FDA-Public Use
  Company Number: US-BIOGEN-2020BI00877320

PATIENT
  Sex: Male

DRUGS (5)
  1. TECFIDERA [Suspect]
     Active Substance: DIMETHYL FUMARATE
     Indication: MULTIPLE SCLEROSIS
     Dosage: PREVIOUSLY TAKEN FOR 2 YEARS
     Route: 065
  2. TECFIDERA [Suspect]
     Active Substance: DIMETHYL FUMARATE
     Dosage: FOR 5 DAYS
     Route: 048
     Dates: start: 20200518
  3. TECFIDERA [Suspect]
     Active Substance: DIMETHYL FUMARATE
     Dosage: MAINTENANCE DOSE
     Route: 048
     Dates: start: 202006
  4. TECFIDERA [Suspect]
     Active Substance: DIMETHYL FUMARATE
     Dosage: THEN 120 MG CAPSULE BY MOUTH TWICE DAILY FOR 5 DAYS
     Route: 048
  5. TECFIDERA [Suspect]
     Active Substance: DIMETHYL FUMARATE
     Dosage: THEN TAKE 1 CAPSULE IN THE MORNING AND 2 CAPSULES AT BEDTIME FOR 4 DAYS.
     Route: 048

REACTIONS (3)
  - Red blood cell count decreased [Unknown]
  - Gastric cancer [Unknown]
  - White blood cell count decreased [Unknown]
